FAERS Safety Report 14290637 (Version 2)
Quarter: 2017Q4

REPORT INFORMATION
  Report Type: Spontaneous
  Country: CA (occurrence: CA)
  Receive Date: 20171215
  Receipt Date: 20171221
  Transmission Date: 20180321
  Serious: Yes (Hospitalization, Other)
  Sender: FDA-Public Use
  Company Number: CA-REGENERON PHARMACEUTICALS, INC.-2017-29019

PATIENT

DRUGS (3)
  1. EYLEA [Suspect]
     Active Substance: AFLIBERCEPT
     Indication: PRODUCT USED FOR UNKNOWN INDICATION
     Dosage: MONOTHERAPY, Q4WKS
     Route: 031
     Dates: start: 20160201, end: 20160413
  2. EYLEA [Suspect]
     Active Substance: AFLIBERCEPT
     Dosage: MONOTHERAPY, Q8WKS, TOTAL NUMBER OF INJECTIONS TAKEN NOT SPECIFIED
     Route: 031
     Dates: start: 20160413
  3. EYLEA [Suspect]
     Active Substance: AFLIBERCEPT
     Dosage: 1 DF, ONCE, LAST INJECTION
     Route: 031
     Dates: start: 20161123

REACTIONS (2)
  - Cardiac failure congestive [Unknown]
  - Cerebrovascular accident [Unknown]
